FAERS Safety Report 11875934 (Version 1)
Quarter: 2015Q4

REPORT INFORMATION
  Report Type: Spontaneous
  Country: US (occurrence: US)
  Receive Date: 20151229
  Receipt Date: 20151229
  Transmission Date: 20160305
  Serious: Yes (Other)
  Sender: FDA-Public Use
  Company Number: GXBR2015US002821

PATIENT
  Sex: Male
  Weight: 78.47 kg

DRUGS (5)
  1. TACROLIMUS. [Suspect]
     Active Substance: TACROLIMUS
     Dosage: 1 MG, BID
     Route: 048
     Dates: start: 20140314
  2. RAPAMUNE [Suspect]
     Active Substance: SIROLIMUS
     Indication: RENAL TRANSPLANT
     Dosage: 0.5 MG, UNK
     Route: 065
     Dates: start: 2010, end: 20140314
  3. TACROLIMUS. [Suspect]
     Active Substance: TACROLIMUS
     Indication: RENAL TRANSPLANT
     Dosage: 1 MG, QD
     Route: 065
     Dates: end: 20140313
  4. RAPAMUNE [Suspect]
     Active Substance: SIROLIMUS
     Dosage: 2 UNK, UNK
     Dates: start: 201405
  5. CELLCEPT [Suspect]
     Active Substance: MYCOPHENOLATE MOFETIL\MYCOPHENOLATE MOFETIL HYDROCHLORIDE
     Indication: RENAL TRANSPLANT
     Dosage: 500 MG, BID
     Route: 065

REACTIONS (3)
  - Basal cell carcinoma [Not Recovered/Not Resolved]
  - Body height decreased [Not Recovered/Not Resolved]
  - Squamous cell carcinoma [Not Recovered/Not Resolved]

NARRATIVE: CASE EVENT DATE: 2014
